FAERS Safety Report 14928250 (Version 2)
Quarter: 2020Q4

REPORT INFORMATION
  Report Type: Spontaneous
  Country: US (occurrence: US)
  Receive Date: 20180523
  Receipt Date: 20201111
  Transmission Date: 20210113
  Serious: Yes (Life-Threatening, Hospitalization, Other)
  Sender: FDA-Public Use
  Company Number: US-AUROBINDO-AUR-APL-2018-025958

PATIENT
  Age: 12 Year
  Sex: Male

DRUGS (7)
  1. ONDANSETRON [Suspect]
     Active Substance: ONDANSETRON
     Indication: PRODUCT USED FOR UNKNOWN INDICATION
     Dosage: 1 DOSAGE FORM, 1 TOTAL
     Route: 042
  2. CLONIDINE. [Concomitant]
     Active Substance: CLONIDINE
     Dosage: 0.3 MILLIGRAM, ONCE A DAY
     Route: 065
  3. FLUOXETINE [Suspect]
     Active Substance: FLUOXETINE HYDROCHLORIDE
     Indication: PRODUCT USED FOR UNKNOWN INDICATION
     Dosage: 20 MILLIGRAM, ONCE A DAY
     Route: 065
  4. CLONIDINE. [Concomitant]
     Active Substance: CLONIDINE
     Indication: PRODUCT USED FOR UNKNOWN INDICATION
     Dosage: 0.2 MILLIGRAM, TWO TIMES A DAY
     Route: 065
  5. CLONIDINE. [Concomitant]
     Active Substance: CLONIDINE
     Dosage: 0.4 MILLIGRAM, ONCE A DAY
     Route: 065
  6. ARIPIPRAZOLE. [Suspect]
     Active Substance: ARIPIPRAZOLE
     Indication: MANIA
     Dosage: 2.5 MILLIGRAM, ONCE A DAY
     Route: 065
  7. CYPROHEPTADINE. [Suspect]
     Active Substance: CYPROHEPTADINE
     Indication: DECREASED APPETITE
     Dosage: 12 MILLIGRAM, ONCE A DAY
     Route: 065

REACTIONS (18)
  - Abnormal behaviour [Recovering/Resolving]
  - Headache [Recovering/Resolving]
  - Urinary incontinence [Recovering/Resolving]
  - Cogwheel rigidity [Recovering/Resolving]
  - Oropharyngeal pain [Recovering/Resolving]
  - Akathisia [Recovering/Resolving]
  - Drooling [Recovering/Resolving]
  - Slow speech [Recovering/Resolving]
  - Mydriasis [Recovering/Resolving]
  - Serotonin syndrome [Recovering/Resolving]
  - Hypokinesia [Recovering/Resolving]
  - Staring [Recovering/Resolving]
  - Tremor [Recovering/Resolving]
  - Echopraxia [Recovering/Resolving]
  - Hypertension [Recovering/Resolving]
  - Abdominal pain [Recovering/Resolving]
  - Clonus [Recovering/Resolving]
  - Tachycardia [Recovering/Resolving]
